FAERS Safety Report 17836830 (Version 1)
Quarter: 2020Q2

REPORT INFORMATION
  Report Type: Spontaneous
  Country: PL (occurrence: PL)
  Receive Date: 20200529
  Receipt Date: 20200529
  Transmission Date: 20200714
  Serious: Yes (Other)
  Sender: FDA-Public Use
  Company Number: PL-ACCORD-183425

PATIENT
  Age: 68 Year
  Sex: Male

DRUGS (7)
  1. POTASSIUM [Concomitant]
     Active Substance: POTASSIUM
     Indication: CARDIAC FAILURE
     Dosage: FOR 2 CONSECUTIVE DAYS
     Route: 048
  2. NITROGLYCERIN. [Concomitant]
     Active Substance: NITROGLYCERIN
     Indication: CARDIAC FAILURE
  3. SPIRONOLACTONE. [Concomitant]
     Active Substance: SPIRONOLACTONE
     Indication: CARDIAC FAILURE
  4. HEPARIN [Concomitant]
     Active Substance: HEPARIN SODIUM
     Indication: CARDIAC FAILURE
  5. ZOFENOPRIL/ZOFENOPRIL CALCIUM [Concomitant]
     Active Substance: ZOFENOPRIL
     Indication: CARDIAC FAILURE
  6. METOPROLOL. [Concomitant]
     Active Substance: METOPROLOL
     Indication: CARDIAC FAILURE
     Dosage: INCREASED TO 200 MG / 24 H
  7. FUROSEMIDE. [Suspect]
     Active Substance: FUROSEMIDE
     Indication: CARDIAC FAILURE
     Dosage: 60 MG X 2, FIRST DOSE AT THE TIME OF ADMISSION - AT 10.00, THE SECOND DOSE AT 17.00

REACTIONS (3)
  - Weight decreased [Recovering/Resolving]
  - Hyponatraemia [Recovering/Resolving]
  - Renal impairment [Recovering/Resolving]
